FAERS Safety Report 14892769 (Version 2)
Quarter: 2018Q2

REPORT INFORMATION
  Report Type: Report from Study
  Country: PL (occurrence: PL)
  Receive Date: 20180514
  Receipt Date: 20180521
  Transmission Date: 20180711
  Serious: Yes (Hospitalization, Other)
  Sender: FDA-Public Use
  Company Number: PL-PFIZER INC-2018191492

PATIENT
  Age: 16 Year
  Sex: Male

DRUGS (2)
  1. SOLU-MEDROL [Suspect]
     Active Substance: METHYLPREDNISOLONE SODIUM SUCCINATE
     Indication: MULTIPLE SCLEROSIS
     Dosage: 1000 MG, QD
     Dates: start: 20180316, end: 20180320
  2. BETAFERON [Suspect]
     Active Substance: INTERFERON BETA-1B
     Indication: MULTIPLE SCLEROSIS
     Dosage: 0.25 ?G, UNK
     Route: 058
     Dates: start: 20180326

REACTIONS (3)
  - Gamma-glutamyltransferase increased [Recovering/Resolving]
  - Aspartate aminotransferase increased [Recovering/Resolving]
  - Alanine aminotransferase increased [Recovering/Resolving]

NARRATIVE: CASE EVENT DATE: 20180327
